FAERS Safety Report 11914503 (Version 2)
Quarter: 2016Q1

REPORT INFORMATION
  Report Type: Spontaneous
  Country: US (occurrence: US)
  Receive Date: 20160113
  Receipt Date: 20160122
  Transmission Date: 20160526
  Serious: Yes (Disabling, Other)
  Sender: FDA-Public Use
  Company Number: US-TEVA-623870USA

PATIENT
  Sex: Female
  Weight: 54.48 kg

DRUGS (6)
  1. CELECOXIB. [Suspect]
     Active Substance: CELECOXIB
     Indication: UNDIFFERENTIATED CONNECTIVE TISSUE DISEASE
  2. CELECOXIB. [Suspect]
     Active Substance: CELECOXIB
     Indication: ARTHRITIS
     Dosage: 100 MILLIGRAM DAILY;
     Route: 048
     Dates: start: 20150126
  3. CELECOXIB. [Suspect]
     Active Substance: CELECOXIB
     Indication: BURSITIS
  4. CELECOXIB. [Suspect]
     Active Substance: CELECOXIB
     Indication: TENDONITIS
  5. METHOTREXATE [Suspect]
     Active Substance: METHOTREXATE
  6. CELECOXIB. [Suspect]
     Active Substance: CELECOXIB
     Indication: ARTHRALGIA
     Dosage: 100 MILLIGRAM DAILY;
     Route: 048
     Dates: start: 201504

REACTIONS (7)
  - Abdominal pain upper [Recovering/Resolving]
  - Disability [Recovering/Resolving]
  - Abasia [Recovering/Resolving]
  - Drug ineffective [Recovering/Resolving]
  - Neck pain [Recovered/Resolved with Sequelae]
  - Arthralgia [Recovering/Resolving]
  - Malaise [Recovering/Resolving]

NARRATIVE: CASE EVENT DATE: 2015
